FAERS Safety Report 9467197 (Version 1)
Quarter: 2013Q3

REPORT INFORMATION
  Report Type: Spontaneous
  Country: AT (occurrence: AT)
  Receive Date: 20130821
  Receipt Date: 20130821
  Transmission Date: 20140515
  Serious: Yes (Hospitalization)
  Sender: FDA-Public Use
  Company Number: PHHY2013AT087108

PATIENT
  Age: 60 Year
  Sex: Female

DRUGS (2)
  1. OXALIPLATIN [Suspect]
     Indication: COLON CANCER
  2. PREDNISOLONE [Suspect]
     Indication: BRONCHOSPASM

REACTIONS (17)
  - Muscular weakness [Unknown]
  - Laryngospasm [Recovered/Resolved]
  - Bronchospasm [Unknown]
  - Muscle atrophy [Unknown]
  - Muscle spasms [Recovered/Resolved]
  - Myopathy [Recovered/Resolved]
  - Eyelid ptosis [Recovered/Resolved]
  - Extraocular muscle paresis [Recovered/Resolved]
  - Dropped head syndrome [Recovered/Resolved]
  - Dysphagia [Unknown]
  - Dysarthria [Unknown]
  - Respiratory muscle weakness [Unknown]
  - Areflexia [Unknown]
  - Ataxia [Unknown]
  - Dyspnoea [Recovered/Resolved]
  - Hyporeflexia [Unknown]
  - Tremor [Unknown]
